FAERS Safety Report 8701691 (Version 2)
Quarter: 2013Q4

REPORT INFORMATION
  Report Type: Spontaneous
  Country: US (occurrence: US)
  Receive Date: 20120803
  Receipt Date: 20131101
  Transmission Date: 20140711
  Serious: No
  Sender: FDA-Public Use
  Company Number: US-009507513-1208USA000024

PATIENT
  Sex: 0

DRUGS (1)
  1. NASONEX [Suspect]
     Dosage: UNK
     Dates: start: 201012

REACTIONS (3)
  - Product quality issue [Unknown]
  - Underdose [Unknown]
  - No adverse event [Unknown]
